FAERS Safety Report 4484195-X (Version None)
Quarter: 2004Q4

REPORT INFORMATION
  Report Type: 
  Country: None (occurrence: None)
  Receive Date: 20041025
  Receipt Date: 20041018
  Transmission Date: 20050328
  Serious: Yes (Hospitalization)
  Sender: FDA-Public Use
  Company Number: US-MERCK-0410USA02579

PATIENT
  Age: 77 Year
  Sex: Female

DRUGS (3)
  1. HYZAAR [Suspect]
     Indication: HYPERTENSION
     Route: 048
  2. CLINDAMYCIN HYDROCHLORIDE [Suspect]
     Indication: ANIMAL BITE
     Route: 065
     Dates: start: 20040720
  3. SYNTHROID [Concomitant]
     Route: 065

REACTIONS (6)
  - ANIMAL BITE [None]
  - DERMATITIS BULLOUS [None]
  - MOUTH HAEMORRHAGE [None]
  - PETECHIAE [None]
  - RASH ERYTHEMATOUS [None]
  - THROMBOCYTOPENIA [None]
